FAERS Safety Report 21340443 (Version 4)
Quarter: 2022Q4

REPORT INFORMATION
  Report Type: Report from Study
  Country: None (occurrence: ES)
  Receive Date: 20220916
  Receipt Date: 20221125
  Transmission Date: 20230113
  Serious: Yes (Other)
  Sender: FDA-Public Use
  Company Number: ES-AKCEA THERAPEUTICS, INC.-2022IS003991

PATIENT
  Age: 59 Year
  Sex: Female

DRUGS (3)
  1. TEGSEDI [Suspect]
     Active Substance: INOTERSEN SODIUM
     Indication: Hereditary neuropathic amyloidosis
     Route: 058
     Dates: start: 20220228
  2. DEVICE [Suspect]
     Active Substance: DEVICE
  3. LATANOPROST [Concomitant]
     Active Substance: LATANOPROST
     Route: 065
     Dates: start: 202210

REACTIONS (38)
  - Mean cell haemoglobin concentration decreased [Unknown]
  - Mean platelet volume increased [Unknown]
  - Urine leukocyte esterase positive [Unknown]
  - Urinary tract infection [Unknown]
  - Protein urine present [Not Recovered/Not Resolved]
  - Platelet count decreased [Recovered/Resolved]
  - Hallucination [Recovered/Resolved]
  - Blindness [Unknown]
  - Coma [Recovered/Resolved]
  - Seizure [Recovered/Resolved]
  - Cerebrovascular accident [Recovered/Resolved]
  - Depressed mood [Not Recovered/Not Resolved]
  - Intra-abdominal haematoma [Unknown]
  - N-terminal prohormone brain natriuretic peptide increased [Unknown]
  - Vitamin A decreased [Unknown]
  - Injection site haematoma [Unknown]
  - Bedridden [Unknown]
  - Red blood cell count decreased [Unknown]
  - Haemoglobin decreased [Unknown]
  - Pollakiuria [Recovered/Resolved]
  - Blood magnesium decreased [Recovered/Resolved]
  - Mental disorder [Recovered/Resolved]
  - Blood creatinine increased [Recovered/Resolved]
  - Creatinine urine increased [Recovered/Resolved]
  - Crystal urine present [Unknown]
  - Dysarthria [Unknown]
  - Asthenia [Not Recovered/Not Resolved]
  - Paraesthesia oral [Recovered/Resolved]
  - Haemoglobin urine present [Recovered/Resolved]
  - Myoglobin urine present [Recovered/Resolved]
  - Diarrhoea [Recovered/Resolved]
  - Polyuria [Unknown]
  - Lymphocyte count decreased [Unknown]
  - Nitrite urine present [Unknown]
  - Urine odour abnormal [Unknown]
  - Blood glucose increased [Unknown]
  - Prealbumin decreased [Unknown]
  - Escherichia test positive [Unknown]

NARRATIVE: CASE EVENT DATE: 20220708
